FAERS Safety Report 9913186 (Version 4)
Quarter: 2014Q1

REPORT INFORMATION
  Report Type: Spontaneous
  Country: US (occurrence: US)
  Receive Date: 20140220
  Receipt Date: 20140317
  Transmission Date: 20141002
  Serious: Yes (Hospitalization, Other)
  Sender: FDA-Public Use
  Company Number: US-009507513-1203USA02834

PATIENT
  Sex: Female
  Weight: 73.47 kg

DRUGS (6)
  1. FOSAMAX [Suspect]
     Indication: OSTEOPENIA
     Dosage: 10 MG, QD
     Route: 048
     Dates: start: 199705
  2. FOSAMAX [Suspect]
     Indication: OSTEOPOROSIS
     Dosage: 70 MG, QW
     Route: 048
  3. ALENDRONATE SODIUM [Suspect]
     Indication: OSTEOPENIA
     Dosage: 70 MG, UNK
     Route: 048
  4. ALENDRONATE SODIUM [Suspect]
     Indication: OSTEOPOROSIS
  5. VITAMINS (UNSPECIFIED) [Concomitant]
  6. TUMS [Concomitant]

REACTIONS (16)
  - Femur fracture [Recovering/Resolving]
  - Intramedullary rod insertion [Unknown]
  - Osteolysis [Unknown]
  - Intramedullary rod insertion [Unknown]
  - Biopsy bone [Unknown]
  - Large intestinal polypectomy [Unknown]
  - Cellulitis [Unknown]
  - Colectomy [Unknown]
  - Electrocauterisation [Unknown]
  - Rectal polyp [Unknown]
  - Gastrointestinal disorder [Unknown]
  - Large intestine polyp [Unknown]
  - Bone cyst [Recovering/Resolving]
  - Hypothyroidism [Unknown]
  - Femur fracture [Recovered/Resolved]
  - Bone lesion [Unknown]
